FAERS Safety Report 8592351-4 (Version None)
Quarter: 2012Q3

REPORT INFORMATION
  Report Type: 
  Country: None (occurrence: None)
  Receive Date: 20120814
  Receipt Date: 20120808
  Transmission Date: 20120928
  Serious: No
  Sender: FDA-Public Use
  Company Number: US-009507513-1208USA003785

PATIENT

DRUGS (3)
  1. METFORMIN HCL [Concomitant]
  2. JANUVIA [Suspect]
     Indication: DIABETES MELLITUS
     Dosage: 50 MG, UNK
     Dates: start: 20120807, end: 20120807
  3. ONGLYZA [Concomitant]

REACTIONS (3)
  - NAUSEA [None]
  - FALL [None]
  - VISION BLURRED [None]
